FAERS Safety Report 9922808 (Version 2)
Quarter: 2014Q1

REPORT INFORMATION
  Report Type: Spontaneous
  Country: US (occurrence: US)
  Receive Date: 20140225
  Receipt Date: 20140225
  Transmission Date: 20141002
  Serious: Yes (Other)
  Sender: FDA-Public Use
  Company Number: US-GE HEALTHCARE MEDICAL DIAGNOSTICS-OSCN-PR-0806S-0439

PATIENT
  Age: 44 Year
  Sex: Male

DRUGS (3)
  1. OMNISCAN [Suspect]
     Indication: LOCAL SWELLING
     Dates: start: 20050302, end: 20050302
  2. OMNISCAN [Suspect]
     Indication: VENOUS THROMBOSIS
  3. CORTICOSTEROID NOS [Concomitant]

REACTIONS (1)
  - Nephrogenic systemic fibrosis [Not Recovered/Not Resolved]
